FAERS Safety Report 6130719-6 (Version None)
Quarter: 2009Q1

REPORT INFORMATION
  Report Type: 
  Country: None (occurrence: None)
  Receive Date: 20090325
  Receipt Date: 20090313
  Transmission Date: 20090719
  Serious: Yes (Other)
  Sender: FDA-Public Use
  Company Number: HQWYE103309AUG04

PATIENT
  Sex: Female
  Weight: 62.65 kg

DRUGS (2)
  1. PREMARIN [Suspect]
     Indication: MENOPAUSAL SYMPTOMS
  2. MEDROXYPROGESTERONE ACETATE [Suspect]

REACTIONS (1)
  - BREAST CANCER METASTATIC [None]
